FAERS Safety Report 22075254 (Version 1)
Quarter: 2023Q1

REPORT INFORMATION
  Report Type: Spontaneous
  Country: GB (occurrence: GB)
  Receive Date: 20230308
  Receipt Date: 20230308
  Transmission Date: 20230418
  Serious: Yes (Life-Threatening)
  Sender: FDA-Public Use
  Company Number: None

PATIENT
  Age: 53 Year
  Sex: Female
  Weight: 79 kg

DRUGS (3)
  1. MONTELUKAST SODIUM [Suspect]
     Active Substance: MONTELUKAST SODIUM
     Indication: Urticaria chronic
     Dosage: 10MG AT NIGHT
     Dates: end: 20230125
  2. CETIRIZINE [Concomitant]
     Active Substance: CETIRIZINE HYDROCHLORIDE
     Indication: Urticaria chronic
     Dosage: UNK
     Dates: end: 20230125
  3. FAMOTIDINE [Concomitant]
     Active Substance: FAMOTIDINE
     Indication: Urticaria chronic
     Dosage: UNK
     Dates: end: 20230125

REACTIONS (2)
  - Medication error [Unknown]
  - Suicidal ideation [Unknown]
